FAERS Safety Report 26096382 (Version 1)
Quarter: 2025Q4

REPORT INFORMATION
  Report Type: Spontaneous
  Country: US (occurrence: US)
  Receive Date: 20251127
  Receipt Date: 20251127
  Transmission Date: 20260117
  Serious: Yes (Other)
  Sender: SUNOVION
  Company Number: US-SMPA-2025SPA015845

PATIENT
  Age: 49 Year
  Sex: Female
  Weight: 80.82 kg

DRUGS (3)
  1. ORGOVYX [Suspect]
     Active Substance: RELUGOLIX
     Indication: Renal cancer
     Dosage: 120 MG, QD
     Route: 048
  2. CABOZANTINIB [Suspect]
     Active Substance: CABOZANTINIB
     Indication: Renal cancer
     Dosage: 60 MG, QD
     Route: 048
     Dates: start: 20251001
  3. CABOZANTINIB [Suspect]
     Active Substance: CABOZANTINIB
     Dosage: 40 MG, QD
     Route: 048

REACTIONS (2)
  - Malignant neoplasm progression [Unknown]
  - Product use in unapproved indication [Unknown]
